FAERS Safety Report 7627571-6 (Version None)
Quarter: 2011Q3

REPORT INFORMATION
  Report Type: 
  Country: None (occurrence: None)
  Receive Date: 20110721
  Receipt Date: 20090125
  Transmission Date: 20111222
  Serious: Yes (Other)
  Sender: FDA-Public Use
  Company Number: US-BAYER-200911494NA

PATIENT
  Age: 76 Year
  Sex: Male
  Weight: 66 kg

DRUGS (11)
  1. HEPARIN [Concomitant]
     Dosage: 10000 U, UNK
     Route: 042
  2. SOLU-CORTEF [Concomitant]
     Dosage: 100 MG, UNK
     Route: 042
     Dates: start: 20040319
  3. VERSED [Concomitant]
     Dosage: 2 MG, UNK
     Route: 042
     Dates: start: 20040217
  4. VERSED [Concomitant]
     Dosage: 2 MG, UNK
     Route: 042
     Dates: start: 20040319
  5. PROTAMINE SULFATE [Concomitant]
     Dosage: 25 MG, UNK
  6. TRASYLOL [Suspect]
     Indication: AORTIC ANEURYSM REPAIR
     Route: 042
     Dates: start: 20040319
  7. ANCEF [Concomitant]
     Dosage: 1 G, UNK
     Route: 042
     Dates: start: 20040319
  8. PROPOFOL [Concomitant]
  9. SOLU-CORTEF [Concomitant]
     Dosage: 100 MG, UNK
     Route: 042
     Dates: start: 20040217
  10. TRASYLOL [Suspect]
     Indication: STENT PLACEMENT
  11. FENTANYL [Concomitant]
     Dosage: 100

REACTIONS (12)
  - MULTI-ORGAN FAILURE [None]
  - RENAL FAILURE [None]
  - STRESS [None]
  - ANHEDONIA [None]
  - UNEVALUABLE EVENT [None]
  - FEAR [None]
  - INJURY [None]
  - ANXIETY [None]
  - RENAL INJURY [None]
  - PAIN [None]
  - RENAL IMPAIRMENT [None]
  - EMOTIONAL DISTRESS [None]
